FAERS Safety Report 6723734-2 (Version None)
Quarter: 2010Q2

REPORT INFORMATION
  Report Type: 
  Country: None (occurrence: None)
  Receive Date: 20100511
  Receipt Date: 20100429
  Transmission Date: 20101027
  Serious: No
  Sender: FDA-Public Use
  Company Number: 2010-00391

PATIENT
  Sex: Male

DRUGS (1)
  1. ZICAM COLD REMEDY GEL SWABS [Suspect]
     Dosage: AS DIRECTED
     Dates: start: 20070505

REACTIONS (3)
  - AGEUSIA [None]
  - DYSGEUSIA [None]
  - NASAL DISCOMFORT [None]
